FAERS Safety Report 7283997-4 (Version None)
Quarter: 2011Q1

REPORT INFORMATION
  Report Type: 
  Country: None (occurrence: None)
  Receive Date: 20110131
  Receipt Date: 20110118
  Transmission Date: 20110831
  Serious: Yes (Congenital Anomaly)
  Sender: FDA-Public Use
  Company Number: 8049488

PATIENT
  Sex: Female
  Weight: 3.4 kg

DRUGS (3)
  1. PRENATAL VITAMINS /01549301/ [Concomitant]
  2. FOLIC ACID [Concomitant]
  3. KEPPRA [Suspect]
     Indication: EPILEPSY
     Dosage: (750 MG TRANSPLACENTAL)
     Route: 064
     Dates: end: 20081223

REACTIONS (5)
  - HYPOTONIA [None]
  - MATERNAL DRUGS AFFECTING FOETUS [None]
  - FEEDING DISORDER OF INFANCY OR EARLY CHILDHOOD [None]
  - DEVELOPMENTAL DELAY [None]
  - ANKYLOGLOSSIA CONGENITAL [None]
